FAERS Safety Report 4366904-3 (Version None)
Quarter: 2004Q2

REPORT INFORMATION
  Report Type: 
  Country: None (occurrence: None)
  Receive Date: 20040526
  Receipt Date: 20040526
  Transmission Date: 20050107
  Serious: Yes (Hospitalization)
  Sender: FDA-Public Use
  Company Number: None

PATIENT
  Age: 59 Year
  Sex: Female
  Weight: 71.2147 kg

DRUGS (2)
  1. TARCEVA [Suspect]
     Indication: PANCREATIC CARCINOMA
     Dosage: 150 MG PO QD (DAYS 1-21)
     Route: 048
     Dates: start: 20040510, end: 20040516
  2. CAPECITAPINE [Suspect]
     Indication: PANCREATIC CARCINOMA
     Dosage: 1800 MG PO IN DIVIDED DOSES QD (DAYS 1-14)
     Route: 048
     Dates: start: 20040510, end: 20040516

REACTIONS (3)
  - DIARRHOEA [None]
  - NAUSEA [None]
  - STOMATITIS [None]
